FAERS Safety Report 11564089 (Version 1)
Quarter: 2015Q3

REPORT INFORMATION
  Report Type: Spontaneous
  Country: KR (occurrence: KR)
  Receive Date: 20150928
  Receipt Date: 20150928
  Transmission Date: 20151125
  Serious: Yes (Hospitalization)
  Sender: FDA-Public Use
  Company Number: KR-MYLANLABS-2015M1032568

PATIENT

DRUGS (5)
  1. HYALURONIDASE [Suspect]
     Active Substance: HYALURONIDASE
     Indication: PRODUCT USED FOR UNKNOWN INDICATION
     Dosage: 1500 IU, UNK
     Route: 037
  2. TRIAMCINOLONE [Suspect]
     Active Substance: TRIAMCINOLONE
     Indication: ANAESTHESIA
     Dosage: 40 MG, UNK
     Route: 037
  3. LIDOCAINE. [Suspect]
     Active Substance: LIDOCAINE
     Indication: ANAESTHESIA
     Dosage: 16 MG, UNK
     Route: 037
  4. SODIUM CHLORIDE. [Suspect]
     Active Substance: SODIUM CHLORIDE
     Indication: ANAESTHESIA
     Dosage: 6CC; 10%
     Route: 037
  5. MIDAZOLAM [Concomitant]
     Active Substance: MIDAZOLAM\MIDAZOLAM HYDROCHLORIDE
     Indication: SEDATION
     Route: 065

REACTIONS (3)
  - Incorrect route of drug administration [Recovered/Resolved]
  - Stress cardiomyopathy [Recovering/Resolving]
  - Cardiac failure [Recovered/Resolved]
